FAERS Safety Report 4705607-X (Version None)
Quarter: 2005Q3

REPORT INFORMATION
  Report Type: 
  Country: None (occurrence: None)
  Receive Date: 20050701
  Receipt Date: 20050627
  Transmission Date: 20060218
  Serious: Yes (Hospitalization)
  Sender: FDA-Public Use
  Company Number: MX-BOEHRINGER INGELHEIM PHARMACEUTICALS, INC.-2005-BP-10881MX

PATIENT
  Age: 55 Year
  Sex: Male

DRUGS (4)
  1. SECOTEX CAPSULES 0.4MG [Suspect]
     Indication: BENIGN PROSTATIC HYPERPLASIA
     Route: 048
     Dates: start: 20050618, end: 20050618
  2. SECOTEX CAPSULES 0.4MG [Suspect]
     Indication: URINARY RETENTION
  3. CONCOR [Concomitant]
     Indication: HYPERTENSION
     Route: 048
  4. NON SPECIFIED DIURETIC [Concomitant]
     Indication: HYPERTENSION
     Route: 048

REACTIONS (1)
  - HYPOTENSION [None]
